FAERS Safety Report 4370410-X (Version None)
Quarter: 2004Q2

REPORT INFORMATION
  Report Type: 
  Country: None (occurrence: None)
  Receive Date: 20040603
  Receipt Date: 20040204
  Transmission Date: 20050107
  Serious: No
  Sender: FDA-Public Use
  Company Number: US-BRISTOL-MYERS SQUIBB COMPANY-12496469

PATIENT
  Age: 6 Year
  Sex: Male
  Weight: 21 kg

DRUGS (7)
  1. ABILIFY [Suspect]
     Indication: ATTENTION DEFICIT/HYPERACTIVITY DISORDER
     Dosage: DOSE DECREASED
     Route: 048
  2. ABILIFY [Suspect]
     Indication: OPPOSITIONAL DEFIANT DISORDER
     Dosage: DOSE DECREASED
     Route: 048
  3. ABILIFY [Suspect]
     Indication: METAL POISONING
     Dosage: DOSE DECREASED
     Route: 048
  4. ABILIFY [Suspect]
     Indication: ABNORMAL BEHAVIOUR
     Dosage: DOSE DECREASED
     Route: 048
  5. TENEX [Concomitant]
  6. EDTA [Concomitant]
  7. AMOXIL [Concomitant]

REACTIONS (3)
  - FEELING ABNORMAL [None]
  - READING DISORDER [None]
  - SOMNOLENCE [None]
